FAERS Safety Report 10193339 (Version 1)
Quarter: 2014Q2

REPORT INFORMATION
  Report Type: Spontaneous
  Country: US (occurrence: US)
  Receive Date: 20140524
  Receipt Date: 20140524
  Transmission Date: 20141212
  Serious: No
  Sender: FDA-Public Use
  Company Number: US-SA-2013SA122083

PATIENT
  Sex: Female

DRUGS (2)
  1. LANTUS SOLOSTAR [Suspect]
     Dosage: DOSE: 40-50 UNITS
     Route: 051
  2. SOLOSTAR [Concomitant]

REACTIONS (4)
  - Abdominal distension [Unknown]
  - Pain [Unknown]
  - Overdose [Unknown]
  - Drug dose omission [Unknown]
